FAERS Safety Report 6420267-8 (Version None)
Quarter: 2009Q4

REPORT INFORMATION
  Report Type: 
  Country: None (occurrence: None)
  Receive Date: 20091029
  Receipt Date: 20091016
  Transmission Date: 20100525
  Serious: Yes (Life-Threatening)
  Sender: FDA-Public Use
  Company Number: JP-ROCHE-654727

PATIENT
  Sex: Male

DRUGS (11)
  1. HORIZON [Suspect]
     Indication: PROPHYLAXIS
     Route: 048
     Dates: start: 20051219, end: 20060523
  2. HORIZON [Suspect]
     Route: 048
     Dates: start: 20060524, end: 20070728
  3. HORIZON [Suspect]
     Route: 048
     Dates: start: 20070729, end: 20090810
  4. HORIZON [Suspect]
     Route: 048
     Dates: start: 20090811
  5. TOPIRAMATE [Suspect]
     Indication: DRUG USE FOR UNKNOWN INDICATION
     Route: 048
     Dates: end: 20090915
  6. RIVOTRIL [Concomitant]
     Indication: PROPHYLAXIS
     Dosage: ROUT REPORTED AS ORAL NOS
     Route: 048
     Dates: start: 20051226
  7. ROHYPNOL [Concomitant]
     Indication: INSOMNIA
     Dates: start: 20060120
  8. DORAL [Concomitant]
     Indication: INSOMNIA
     Dates: start: 20030502
  9. NITRAZEPAM [Concomitant]
     Indication: INSOMNIA
     Dates: start: 20060729
  10. MAGNESIUM OXIDE [Concomitant]
     Dates: start: 20090220
  11. LIDOCAINE [Concomitant]

REACTIONS (1)
  - PANCYTOPENIA [None]
